FAERS Safety Report 6055557-4 (Version None)
Quarter: 2009Q1

REPORT INFORMATION
  Report Type: 
  Country: None (occurrence: None)
  Receive Date: 20090128
  Receipt Date: 20090123
  Transmission Date: 20090719
  Serious: Yes (Hospitalization)
  Sender: FDA-Public Use
  Company Number: B0555784A

PATIENT
  Age: 94 Year
  Sex: Male

DRUGS (21)
  1. CLAMOXYL [Suspect]
     Dosage: 1G THREE TIMES PER DAY
     Route: 048
     Dates: start: 20081229, end: 20081230
  2. DALACINE [Suspect]
     Route: 030
     Dates: start: 20081219, end: 20081229
  3. TAZOCILLINE [Suspect]
     Route: 042
     Dates: start: 20081219, end: 20081229
  4. AUGMENTIN '125' [Concomitant]
     Indication: ERYSIPELAS
     Dosage: 3G PER DAY
     Route: 048
     Dates: start: 20081215, end: 20081219
  5. CALCIPARINE [Concomitant]
  6. COLCHIMAX [Concomitant]
  7. TRAMADOL HCL [Concomitant]
  8. DIFFU K [Concomitant]
  9. FONZYLANE [Concomitant]
  10. HYPERIUM [Concomitant]
     Route: 048
  11. INIPOMP [Concomitant]
     Route: 048
  12. IPRATROPIUM BROMIDE [Concomitant]
  13. ISOPTIN [Concomitant]
     Route: 048
  14. LASILIX [Concomitant]
     Route: 048
  15. INDAPAMIDE [Concomitant]
  16. PYOSTACINE [Concomitant]
     Route: 048
     Dates: start: 20081230
  17. SALBUTAMOL [Concomitant]
  18. STILNOX [Concomitant]
     Route: 048
  19. OXYGEN [Concomitant]
     Indication: CARDIAC FAILURE
     Dosage: 2LM PER DAY
  20. GENTAMICIN [Concomitant]
     Route: 065
     Dates: start: 20081219, end: 20081223
  21. CIFLOX [Concomitant]
     Indication: ERYSIPELAS
     Dosage: 400MG PER DAY
     Dates: start: 20081215, end: 20081219

REACTIONS (3)
  - EOSINOPHILIA [None]
  - PRURITUS [None]
  - RASH MORBILLIFORM [None]
